FAERS Safety Report 8050059-8 (Version None)
Quarter: 2012Q1

REPORT INFORMATION
  Report Type: 
  Country: None (occurrence: None)
  Receive Date: 20120117
  Receipt Date: 20120113
  Transmission Date: 20120608
  Serious: Yes (Death, Hospitalization)
  Sender: FDA-Public Use
  Company Number: SE-B.I. PHARMACEUTICALS,INC./RIDGEFIELD-2011-SW-00492SW

PATIENT
  Sex: Female

DRUGS (14)
  1. CITALOPRAM [Concomitant]
  2. ATACAND [Concomitant]
  3. METOPROLOL TARTRATE [Concomitant]
  4. IMDUR [Concomitant]
  5. VOLTAREN [Concomitant]
     Dosage: FORMULATION: SOLUTION 1 MG/ML. ROUTE: EYE DROPS
  6. NITROMEX SUBLINGUAL [Concomitant]
     Route: 060
  7. PRADAXA [Suspect]
     Indication: ATRIAL FIBRILLATION
     Dosage: 150 MG
     Route: 048
     Dates: start: 20110908, end: 20111009
  8. MAXIDEX [Concomitant]
     Dosage: FORMULATION: SUSPENSION 1 MG/ML
  9. HYDROXOCOBALAMIN [Concomitant]
     Dosage: FORMULATION: FILM COATED TABLETS
  10. CALCIUM CARBONATE [Concomitant]
     Dosage: STRENGTH: 500 MG/400 IE
  11. RISEDRONATE SODIUM [Concomitant]
  12. LAKTULOS [Concomitant]
  13. FOLIC ACID [Concomitant]
  14. FUROSEMIDE [Concomitant]

REACTIONS (1)
  - CEREBRAL INFARCTION [None]
